FAERS Safety Report 8505495 (Version 2)
Quarter: 2013Q1

REPORT INFORMATION
  Report Type: Spontaneous
  Country: US (occurrence: US)
  Receive Date: 20120412
  Receipt Date: 20130321
  Transmission Date: 20140127
  Serious: No
  Sender: FDA-Public Use
  Company Number: US-PFIZER INC-2012087476

PATIENT
  Age: 61 Year
  Sex: 0

DRUGS (4)
  1. SEPTRA DS [Suspect]
     Dosage: UNK
  2. RELAFEN [Suspect]
     Dosage: UNK
  3. ZONEGRAN [Suspect]
     Dosage: UNK
  4. KEFLEX [Suspect]

REACTIONS (2)
  - Abdominal pain [Unknown]
  - Hypersensitivity [Unknown]
